FAERS Safety Report 9927524 (Version 2)
Quarter: 2014Q1

REPORT INFORMATION
  Report Type: Report from Study
  Country: US (occurrence: US)
  Receive Date: 20140227
  Receipt Date: 20140320
  Transmission Date: 20141002
  Serious: Yes (Hospitalization)
  Sender: FDA-Public Use
  Company Number: US-ROCHE-1355310

PATIENT
  Age: 81 Year
  Sex: Male
  Weight: 68.2 kg

DRUGS (1)
  1. VEMURAFENIB [Suspect]
     Indication: METASTATIC MALIGNANT MELANOMA
     Dosage: MOST RECENT DOSE OF VEMURAFENIB ON : 15/OCT/2013
     Route: 048
     Dates: start: 20130422

REACTIONS (1)
  - Dyspnoea [Recovered/Resolved]
